FAERS Safety Report 9422185 (Version 3)
Quarter: 2013Q3

REPORT INFORMATION
  Report Type: Report from Study
  Country: BR (occurrence: BR)
  Receive Date: 20130726
  Receipt Date: 20130802
  Transmission Date: 20140515
  Serious: Yes (Death, Life-Threatening, Hospitalization, Other)
  Sender: FDA-Public Use
  Company Number: PHHO2013BR009424

PATIENT
  Age: 26 Year
  Sex: Male
  Weight: 61.5 kg

DRUGS (3)
  1. MYCOPHENOLIC ACID [Suspect]
     Indication: RENAL TRANSPLANT
     Dosage: 720 MG, BID
     Route: 048
     Dates: start: 20121220, end: 20130707
  2. MYCOPHENOLIC ACID [Suspect]
     Dosage: 360 MG, BID
     Route: 048
     Dates: start: 20130715, end: 20130718
  3. SIMULECT [Suspect]
     Indication: RENAL TRANSPLANT
     Dosage: 20 MG, ONCE/SINGLE
     Route: 042
     Dates: start: 20121219, end: 20121223

REACTIONS (5)
  - Febrile neutropenia [Fatal]
  - Pseudomembranous colitis [Fatal]
  - Sepsis [Fatal]
  - Septic shock [Fatal]
  - Disseminated cryptococcosis [Fatal]
